FAERS Safety Report 11489495 (Version 4)
Quarter: 2015Q4

REPORT INFORMATION
  Report Type: Spontaneous
  Country: US (occurrence: None)
  Receive Date: 20150909
  Receipt Date: 20151123
  Transmission Date: 20160304
  Serious: Yes (Other)
  Sender: FDA-Public Use
  Company Number: US-MDT-ADR-2015-01739

PATIENT
  Age: 50 Year
  Sex: Female

DRUGS (2)
  1. DILAUDID [Suspect]
     Active Substance: HYDROMORPHONE HYDROCHLORIDE
     Indication: MUSCLE SPASTICITY
     Dosage: 1.1575 MG/DAY
  2. BACLOFEN INTRATHECAL 2000 MCG/ML [Suspect]
     Active Substance: BACLOFEN
     Indication: MUSCLE SPASTICITY
     Dosage: 551.2 MCG/DAY

REACTIONS (6)
  - Drug withdrawal syndrome [None]
  - Pain [None]
  - Muscle tightness [None]
  - Device damage [None]
  - Therapeutic response decreased [None]
  - Device occlusion [None]
